FAERS Safety Report 4527022-4 (Version None)
Quarter: 2004Q4

REPORT INFORMATION
  Report Type: 
  Country: None (occurrence: None)
  Receive Date: 20041201
  Receipt Date: 20040930
  Transmission Date: 20050328
  Serious: No
  Sender: FDA-Public Use
  Company Number: MPS1-10289

PATIENT
  Sex: Female
  Weight: 35.8342 kg

DRUGS (1)
  1. ALDURAZYME [Suspect]
     Dosage: 0.58 MG/KG QWK IV
     Route: 042
     Dates: start: 20020601

REACTIONS (2)
  - CORNEAL OPACITY [None]
  - GLAUCOMA [None]
